FAERS Safety Report 7482596 (Version 2)
Quarter: 2012Q4

REPORT INFORMATION
  Report Type: 
  Country: US (occurrence: US)
  Receive Date: 20100717
  Receipt Date: 20121023
  Transmission Date: 20130627
  Serious: Yes (Other)
  Sender: FDA-Public Use
  Company Number: US-PFIZER INC-2008006225

PATIENT
  Age: 55 Year
  Sex: Male

DRUGS (9)
  1. CHANTIX [Suspect]
     Indication: SMOKING CESSATION THERAPY
     Dosage: 0.5 mg, 1x/day
     Route: 048
     Dates: start: 20080103, end: 20080105
  2. CHANTIX [Suspect]
     Dosage: 0.5 mg, 2x/day
     Route: 048
     Dates: start: 20080106, end: 20080109
  3. CHANTIX [Suspect]
     Dosage: 1 mg, 2x/day
     Route: 048
     Dates: start: 20080110, end: 200802
  4. ALPRAZOLAM [Concomitant]
     Dosage: 1 mg, UNK
  5. ATENOLOL [Concomitant]
  6. HYDROXYZINE [Concomitant]
  7. LIPITOR [Concomitant]
  8. AMLODIPINE BESILATE [Concomitant]
  9. ACETYLSALICYLIC ACID [Concomitant]

REACTIONS (2)
  - Type 2 diabetes mellitus [Unknown]
  - Abnormal dreams [Unknown]
